FAERS Safety Report 15185545 (Version 4)
Quarter: 2023Q2

REPORT INFORMATION
  Report Type: Report from Study
  Country: US (occurrence: US)
  Receive Date: 20180723
  Receipt Date: 20230508
  Transmission Date: 20230722
  Serious: Yes (Hospitalization, Other)
  Sender: FDA-Public Use
  Company Number: US-SHIRE-US201825710

PATIENT
  Sex: Male
  Weight: 58.957 kg

DRUGS (10)
  1. VELAGLUCERASE ALFA [Suspect]
     Active Substance: VELAGLUCERASE ALFA
     Indication: Gaucher^s disease type I
     Dosage: UNK UNK, Q2WEEKS
     Route: 042
     Dates: start: 20161018
  2. VELAGLUCERASE ALFA [Suspect]
     Active Substance: VELAGLUCERASE ALFA
     Indication: Lipidosis
     Dosage: 3600 INTERNATIONAL UNIT
     Route: 042
     Dates: start: 20220418
  3. DIPHENHYDRAMINE [Concomitant]
     Active Substance: DIPHENHYDRAMINE
     Route: 065
  4. EPINEPHRINE [Concomitant]
     Active Substance: EPINEPHRINE
     Route: 065
  5. SODIUM CHLORIDE [Concomitant]
     Active Substance: SODIUM CHLORIDE
     Route: 065
  6. MELATONIN [Concomitant]
     Active Substance: MELATONIN
     Route: 065
  7. STERILE WATER [Concomitant]
     Active Substance: WATER
  8. FAMOTIDINE [Concomitant]
     Active Substance: FAMOTIDINE
  9. METHYLENE BLUE [Concomitant]
     Active Substance: METHYLENE BLUE
     Route: 065
  10. SODIUM CHLORIDE [Concomitant]
     Active Substance: SODIUM CHLORIDE
     Route: 065

REACTIONS (6)
  - Nephrolithiasis [Recovered/Resolved]
  - Splenomegaly [Unknown]
  - Infusion site rash [Recovered/Resolved]
  - Rash macular [Recovered/Resolved]
  - Neuralgia [Recovering/Resolving]
  - Infusion related reaction [Unknown]
